APPROVED DRUG PRODUCT: CLOTRIMAZOLE
Active Ingredient: CLOTRIMAZOLE
Strength: 10MG
Dosage Form/Route: TROCHE/LOZENGE;ORAL
Application: A076387 | Product #001 | TE Code: AB
Applicant: HIKMA PHARMACEUTICALS USA INC
Approved: Jul 29, 2004 | RLD: No | RS: Yes | Type: RX